FAERS Safety Report 4918606-X (Version None)
Quarter: 2006Q1

REPORT INFORMATION
  Report Type: 
  Country: None (occurrence: None)
  Receive Date: 20060221
  Receipt Date: 20060221
  Transmission Date: 20060701
  Serious: Yes (Hospitalization)
  Sender: FDA-Public Use
  Company Number: None

PATIENT
  Age: 71 Year
  Sex: Female

DRUGS (3)
  1. PREGABALIN   75 MG   PFIZER [Suspect]
     Indication: PAIN
     Dosage: 75 MG  BID  PO
     Route: 048
  2. .. [Concomitant]
  3. .. [Concomitant]

REACTIONS (2)
  - CONDITION AGGRAVATED [None]
  - MYASTHENIA GRAVIS [None]
